FAERS Safety Report 5198402-1 (Version None)
Quarter: 2006Q4

REPORT INFORMATION
  Report Type: 
  Country: None (occurrence: None)
  Receive Date: 20061229
  Receipt Date: 20061229
  Transmission Date: 20070319
  Serious: Yes (Disabling)
  Sender: FDA-Public Use
  Company Number: None

PATIENT
  Age: 49 Year
  Sex: Female
  Weight: 65.7716 kg

DRUGS (1)
  1. PREVACID [Suspect]
     Indication: OVERDOSE
     Dosage: 30MG DAILY IV DRIP
     Route: 041
     Dates: start: 20061228, end: 20061228

REACTIONS (15)
  - ACCIDENTAL OVERDOSE [None]
  - BLOOD PRESSURE INCREASED [None]
  - DRUG ABUSER [None]
  - DYSPNOEA [None]
  - ERYTHEMA [None]
  - HYPERHIDROSIS [None]
  - INFUSION SITE ERYTHEMA [None]
  - INFUSION SITE RASH [None]
  - MUSCLE TWITCHING [None]
  - OEDEMA PERIPHERAL [None]
  - OXYGEN SATURATION DECREASED [None]
  - RASH [None]
  - SKIN DISCOLOURATION [None]
  - TACHYCARDIA [None]
  - UNRESPONSIVE TO STIMULI [None]
